FAERS Safety Report 6115773-X (Version None)
Quarter: 2009Q1

REPORT INFORMATION
  Report Type: 
  Country: None (occurrence: None)
  Receive Date: 20090311
  Receipt Date: 20090304
  Transmission Date: 20090719
  Serious: Yes (Hospitalization)
  Sender: FDA-Public Use
  Company Number: CHPA2009US05844

PATIENT
  Age: 7 Year
  Sex: Female
  Weight: 17.7 kg

DRUGS (1)
  1. TRIAMINIC-D MULTISYMPTOM COLD (NCH) (CHLORPHENIRAMINE MALEATE, DEXTROM [Suspect]
     Indication: NASOPHARYNGITIS
     Dosage: 1 TSP, BID, ORAL
     Route: 048
     Dates: start: 20090227, end: 20090227

REACTIONS (1)
  - ASTHMA [None]
